FAERS Safety Report 21611035 (Version 2)
Quarter: 2023Q4

REPORT INFORMATION
  Report Type: Report from Study
  Country: ES (occurrence: ES)
  Receive Date: 20221117
  Receipt Date: 20231123
  Transmission Date: 20240110
  Serious: Yes (Hospitalization)
  Sender: FDA-Public Use
  Company Number: ES-JAZZ-2022-ES-027265

PATIENT

DRUGS (14)
  1. LURBINECTEDIN [Suspect]
     Active Substance: LURBINECTEDIN
     Indication: Small cell lung cancer
     Dosage: CYCLE 07-DAY 1
     Route: 042
     Dates: start: 20220112, end: 20220112
  2. IRINOTECAN [Suspect]
     Active Substance: IRINOTECAN
     Indication: Small cell lung cancer
     Dosage: CYCLE 1 DAY 1
     Route: 042
     Dates: start: 20210831, end: 20210831
  3. IRINOTECAN [Suspect]
     Active Substance: IRINOTECAN
     Dosage: CYCLE 07-DAY 1
     Route: 042
     Dates: start: 20220112, end: 20220112
  4. IRINOTECAN [Suspect]
     Active Substance: IRINOTECAN
     Dosage: CYCLE 07-DAY 8
     Route: 042
     Dates: start: 20220119, end: 20220119
  5. IRINOTECAN [Suspect]
     Active Substance: IRINOTECAN
     Dosage: CYCLE 16 -DAY 8
     Route: 042
     Dates: start: 20220803
  6. SIMVASTATIN [Concomitant]
     Active Substance: SIMVASTATIN
     Indication: Dyslipidaemia
     Dosage: DAY
     Dates: start: 20210831
  7. RIVAROXABAN [Concomitant]
     Active Substance: RIVAROXABAN
     Indication: Atrial fibrillation
     Dosage: DAY
     Dates: start: 20130101
  8. CARVEDILOL [Concomitant]
     Active Substance: CARVEDILOL
     Indication: Atrial fibrillation
     Dosage: DAY
     Dates: start: 20130101, end: 20220809
  9. LOSARTAN [Concomitant]
     Active Substance: LOSARTAN
     Indication: Hypertension
     Dosage: UNK
     Dates: start: 20150101
  10. AMLODIPINE [Concomitant]
     Active Substance: AMLODIPINE BESYLATE
     Indication: Hypertension
     Dosage: UNK
     Dates: start: 20180101
  11. ATROPINE [Concomitant]
     Active Substance: ATROPINE\ATROPINE SULFATE
     Indication: Product used for unknown indication
     Dosage: UNK
     Dates: start: 20220727, end: 20220803
  12. GRANULOCYTE COLONY-STIMULATING FACTOR NOS [Concomitant]
     Active Substance: GRANULOCYTE COLONY-STIMULATING FACTOR NOS
     Indication: Product used for unknown indication
     Dosage: UNK
     Dates: start: 20220728, end: 20220801
  13. DEXAMETHASONE [Concomitant]
     Active Substance: DEXAMETHASONE
     Indication: Product used for unknown indication
     Dosage: UNK
     Dates: start: 20220727, end: 20220803
  14. ONDANSETRON [Concomitant]
     Active Substance: ONDANSETRON
     Indication: Product used for unknown indication
     Dosage: UNK
     Dates: start: 20220727, end: 20220803

REACTIONS (3)
  - Septic shock [Recovered/Resolved]
  - COVID-19 [Recovered/Resolved]
  - Febrile neutropenia [Recovered/Resolved]

NARRATIVE: CASE EVENT DATE: 20220805
